FAERS Safety Report 11942800 (Version 1)
Quarter: 2016Q1

REPORT INFORMATION
  Report Type: Spontaneous
  Country: US (occurrence: US)
  Receive Date: 20160125
  Receipt Date: 20160125
  Transmission Date: 20160526
  Serious: No
  Sender: FDA-Public Use
  Company Number: US-UNITED THERAPEUTICS-UNT-2015-008863

PATIENT
  Age: 56 Year
  Sex: Male
  Weight: 83.9 kg

DRUGS (4)
  1. LETAIRIS [Concomitant]
     Active Substance: AMBRISENTAN
     Indication: PRODUCT USED FOR UNKNOWN INDICATION
  2. SILDENAFIL. [Concomitant]
     Active Substance: SILDENAFIL
     Indication: PRODUCT USED FOR UNKNOWN INDICATION
  3. REMODULIN [Suspect]
     Active Substance: TREPROSTINIL
     Dosage: 0.037 ?G/KG/MIN, CONTINUING
  4. REMODULIN [Suspect]
     Active Substance: TREPROSTINIL
     Indication: PULMONARY ARTERIAL HYPERTENSION
     Dosage: 0.039 ?G/KG/MIN, CONTINUING
     Route: 058
     Dates: start: 20111103

REACTIONS (10)
  - Nausea [Unknown]
  - Depressed mood [Unknown]
  - Pyrexia [Unknown]
  - Drug dose omission [Unknown]
  - Flushing [Unknown]
  - Vomiting [Unknown]
  - Infusion site pain [Not Recovered/Not Resolved]
  - Device issue [Unknown]
  - Device dislocation [Unknown]
  - Accidental overdose [Unknown]

NARRATIVE: CASE EVENT DATE: 20150718
